FAERS Safety Report 10948197 (Version 3)
Quarter: 2015Q2

REPORT INFORMATION
  Report Type: Spontaneous
  Country: US (occurrence: US)
  Receive Date: 20150324
  Receipt Date: 20150409
  Transmission Date: 20150821
  Serious: No
  Sender: FDA-Public Use
  Company Number: US-BIOGENIDEC-2015BI034780

PATIENT
  Age: 57 Year
  Sex: Female

DRUGS (9)
  1. HCTZ [Concomitant]
     Active Substance: HYDROCHLOROTHIAZIDE
  2. CRESTOR [Concomitant]
     Active Substance: ROSUVASTATIN CALCIUM
  3. LIPITOR [Concomitant]
     Active Substance: ATORVASTATIN CALCIUM
  4. AVONEX [Suspect]
     Active Substance: INTERFERON BETA-1A
     Indication: MULTIPLE SCLEROSIS
     Route: 030
     Dates: start: 20150309
  5. ENALAPRIL [Concomitant]
     Active Substance: ENALAPRIL
  6. GABAPENTIN. [Concomitant]
     Active Substance: GABAPENTIN
  7. XANAX [Concomitant]
     Active Substance: ALPRAZOLAM
  8. TRAMADOL [Concomitant]
     Active Substance: TRAMADOL
  9. VITAMIN D [Concomitant]
     Active Substance: CHOLECALCIFEROL

REACTIONS (5)
  - Muscle tightness [Recovered/Resolved with Sequelae]
  - Tremor [Recovered/Resolved]
  - Chills [Recovered/Resolved with Sequelae]
  - Influenza like illness [Recovered/Resolved]
  - Decreased appetite [Recovered/Resolved with Sequelae]

NARRATIVE: CASE EVENT DATE: 20150309
